FAERS Safety Report 8165605-3 (Version None)
Quarter: 2012Q1

REPORT INFORMATION
  Report Type: 
  Country: None (occurrence: None)
  Receive Date: 20120227
  Receipt Date: 20120221
  Transmission Date: 20120608
  Serious: Yes (Hospitalization)
  Sender: FDA-Public Use
  Company Number: FR-US-EMD SERONO, INC.-7097725

PATIENT
  Age: 32 Year
  Sex: Female

DRUGS (3)
  1. CHORIONIC GONADOTROPIN [Suspect]
     Indication: OVULATION INDUCTION
     Route: 058
     Dates: start: 20110305, end: 20110305
  2. DECAPEPTYL [Suspect]
     Indication: OVULATION INDUCTION
     Route: 058
     Dates: start: 20110224, end: 20110304
  3. GONAL-F [Suspect]
     Indication: OVULATION INDUCTION
     Route: 058
     Dates: start: 20110224, end: 20110304

REACTIONS (4)
  - OVARIAN HYPERSTIMULATION SYNDROME [None]
  - CYTOLYTIC HEPATITIS [None]
  - PREGNANCY [None]
  - ASCITES [None]
